FAERS Safety Report 13656227 (Version 1)
Quarter: 2017Q2

REPORT INFORMATION
  Report Type: Spontaneous
  Country: JP (occurrence: JP)
  Receive Date: 20170615
  Receipt Date: 20170615
  Transmission Date: 20170830
  Serious: Yes (Hospitalization)
  Sender: FDA-Public Use
  Company Number: JP-PFIZER INC-2017202160

PATIENT
  Age: 86 Year
  Sex: Male
  Weight: 69 kg

DRUGS (10)
  1. NORVASC [Suspect]
     Active Substance: AMLODIPINE BESYLATE
     Dosage: 2.5 MG, 2X/DAY
     Route: 048
  2. METHYCOBAL [Concomitant]
     Active Substance: METHYLCOBALAMIN
     Dosage: 0.5 MG, 3X/DAY
     Route: 048
  3. TAMSULOSIN HYDROCHLORIDE. [Concomitant]
     Active Substance: TAMSULOSIN HYDROCHLORIDE
     Dosage: 0.1 MG, 1X/DAY
     Route: 048
  4. FLUVASTATIN [Concomitant]
     Active Substance: FLUVASTATIN SODIUM
     Dosage: 20 MG, 1X/DAY
     Route: 048
  5. THYRADIN S [Concomitant]
     Active Substance: LEVOTHYROXINE SODIUM
     Dosage: 0.025 MG, 1X/DAY
     Route: 048
     Dates: start: 20120209
  6. ACTOS [Suspect]
     Active Substance: PIOGLITAZONE HYDROCHLORIDE
     Indication: DIABETES MELLITUS
     Dosage: UNKNOWN DOSE
  7. KINELDAR [Concomitant]
     Dosage: 50 MG, 3X/DAY
     Route: 048
  8. EQUA [Concomitant]
     Active Substance: VILDAGLIPTIN
     Dosage: 50 MG, 2X/DAY
     Route: 048
  9. BETANIS [Concomitant]
     Active Substance: MIRABEGRON
     Dosage: 50 MG, 1X/DAY
     Route: 048
     Dates: start: 20161212
  10. GLUBES [Concomitant]
     Active Substance: MITIGLINIDE CALCIUM HYDRATE\VOGLIBOSE
     Dosage: 1 DF, 3X/DAY
     Dates: start: 20130920

REACTIONS (1)
  - Bladder cancer [Unknown]

NARRATIVE: CASE EVENT DATE: 20170510
